FAERS Safety Report 8127918-0 (Version None)
Quarter: 2012Q1

REPORT INFORMATION
  Report Type: 
  Country: None (occurrence: None)
  Receive Date: 20120210
  Receipt Date: 20120201
  Transmission Date: 20120608
  Serious: Yes (Life-Threatening, Hospitalization)
  Sender: FDA-Public Use
  Company Number: SE-AMGEN-00090374

PATIENT
  Age: 47 Year
  Sex: Male

DRUGS (10)
  1. METHOTREXATE SODIUM [Suspect]
     Dosage: UNK UNK, UNK
     Route: 065
     Dates: start: 19990101, end: 19991216
  2. NANDROLONE [Concomitant]
     Dosage: UNK
  3. CALCIUM [Concomitant]
     Dosage: UNK
  4. ETANERCEPT [Suspect]
     Indication: PSORIASIS
     Dosage: 10 MG, UNK
     Dates: start: 19990701, end: 19991216
  5. ETANERCEPT [Suspect]
     Indication: RHEUMATOID ARTHRITIS
  6. DEXAMETHASONE [Concomitant]
  7. CARMELLOSE [Concomitant]
     Dosage: UNK
  8. IRON SORBITEX [Concomitant]
     Dosage: UNK
  9. OMEPRAZOLE [Concomitant]
     Dosage: UNK
  10. EPOETIN ALFA [Concomitant]
     Dosage: UNK

REACTIONS (2)
  - ENCEPHALITIS [None]
  - ENCEPHALOPATHY [None]
